FAERS Safety Report 17261492 (Version 2)
Quarter: 2020Q1

REPORT INFORMATION
  Report Type: Report from Study
  Country: IT (occurrence: IT)
  Receive Date: 20200113
  Receipt Date: 20200219
  Transmission Date: 20200409
  Serious: Yes (Hospitalization)
  Sender: FDA-Public Use
  Company Number: IT-ACCORD-169349

PATIENT
  Age: 79 Year
  Sex: Female

DRUGS (11)
  1. ALLOPURINOL. [Suspect]
     Active Substance: ALLOPURINOL
     Route: 048
     Dates: start: 20191124, end: 20191124
  2. METFORMIN [Suspect]
     Active Substance: METFORMIN HYDROCHLORIDE
     Route: 048
     Dates: start: 20191124, end: 20191124
  3. PREGABALIN. [Suspect]
     Active Substance: PREGABALIN
     Route: 048
     Dates: start: 20191124, end: 20191124
  4. VENLAFAXINE/VENLAFAXINE HYDROCHLORIDE [Suspect]
     Active Substance: VENLAFAXINE HYDROCHLORIDE
     Route: 048
     Dates: start: 20191124, end: 20191124
  5. FERRO-GRAD [Suspect]
     Active Substance: FERROUS SULFATE
     Route: 048
     Dates: start: 20191124, end: 20191124
  6. BISOPROLOL [Suspect]
     Active Substance: BISOPROLOL
     Route: 048
     Dates: start: 20191124, end: 20191124
  7. LASIX [Suspect]
     Active Substance: FUROSEMIDE
     Dosage: STRENGTH: 25 MG
     Route: 048
     Dates: start: 20191124, end: 20191124
  8. RAMIPRIL. [Suspect]
     Active Substance: RAMIPRIL
     Route: 048
     Dates: start: 20191124, end: 20191124
  9. ACETYLSALICYLIC ACID [Suspect]
     Active Substance: ASPIRIN
     Route: 048
     Dates: start: 20191124, end: 20191124
  10. VASEXTEN [Suspect]
     Active Substance: BARNIDIPINE HYDROCHLORIDE
     Dosage: STRENGTH: 20 MG
     Route: 048
     Dates: start: 20191124, end: 20191124
  11. LUVION (CANRENOIC ACID) [Suspect]
     Active Substance: CANRENOIC ACID
     Dosage: STRENGTH: 50 MG
     Route: 048
     Dates: start: 20191124, end: 20191124

REACTIONS (3)
  - Drug abuse [Unknown]
  - Lactic acidosis [Recovering/Resolving]
  - Sopor [Recovering/Resolving]

NARRATIVE: CASE EVENT DATE: 20191124
